FAERS Safety Report 6880980-5 (Version None)
Quarter: 2010Q2

REPORT INFORMATION
  Report Type: 
  Country: None (occurrence: None)
  Receive Date: 20100630
  Receipt Date: 20100428
  Transmission Date: 20101027
  Serious: Yes (Hospitalization)
  Sender: FDA-Public Use
  Company Number: 2010054237

PATIENT
  Age: 14 Year
  Sex: Male

DRUGS (4)
  1. ZITHROMAX [Suspect]
     Indication: BACTERIAL INFECTION
     Dosage: ORAL
     Route: 048
  2. LISDEXAMFETAMINE DIMESYLATE (LISDEXAMFETAMINE DIMESYLATE) CAPSULE [Suspect]
     Indication: ATTENTION DEFICIT/HYPERACTIVITY DISORDER
     Dosage: 50 MG, 1X/DAY, ORAL ; 50 MG, 1X/DAY, ORAL
     Route: 048
     Dates: start: 20100101, end: 20100101
  3. LISDEXAMFETAMINE DIMESYLATE (LISDEXAMFETAMINE DIMESYLATE) CAPSULE [Suspect]
     Indication: ATTENTION DEFICIT/HYPERACTIVITY DISORDER
     Dosage: 50 MG, 1X/DAY, ORAL ; 50 MG, 1X/DAY, ORAL
     Route: 048
     Dates: end: 20100101
  4. LORATADINE [Concomitant]

REACTIONS (4)
  - DIARRHOEA [None]
  - DISCOMFORT [None]
  - HEPATITIS [None]
  - VOMITING [None]
